FAERS Safety Report 16230953 (Version 4)
Quarter: 2019Q2

REPORT INFORMATION
  Report Type: Report from Study
  Country: None (occurrence: BE)
  Receive Date: 20190423
  Receipt Date: 20190508
  Transmission Date: 20190711
  Serious: Yes (Hospitalization, Other)
  Sender: FDA-Public Use
  Company Number: BE-ABBVIE-19S-013-2750527-00

PATIENT
  Age: 75 Year
  Sex: Male

DRUGS (11)
  1. ASAFLOW [Concomitant]
     Active Substance: ASPIRIN
     Indication: PRODUCT USED FOR UNKNOWN INDICATION
     Route: 065
  2. DUODOPA [Suspect]
     Active Substance: CARBIDOPA\LEVODOPA
     Dosage: MD=5.5ML CD=1.9ML/HR DURING 16HRS ED=1ML
     Route: 050
     Dates: start: 20190419, end: 20190503
  3. STALEVO 100 [Concomitant]
     Dosage: FORM STRENGTH: 100MG/25MG/200MG?RESCUE MEDICATION, 3 TIMES A DAY
     Route: 048
  4. SIMVASTATINE [Concomitant]
     Active Substance: SIMVASTATIN
     Indication: PRODUCT USED FOR UNKNOWN INDICATION
     Route: 065
  5. DUODOPA [Suspect]
     Active Substance: CARBIDOPA\LEVODOPA
     Indication: PARKINSON^S DISEASE
     Dosage: EVALUATION WEEK
     Route: 050
     Dates: start: 20181119
  6. DUODOPA [Suspect]
     Active Substance: CARBIDOPA\LEVODOPA
     Dosage: MD=5.5ML CD=1.8ML/HR DURING 16HRS ED=1ML
     Route: 050
     Dates: start: 20190416, end: 20190419
  7. DUODOPA [Suspect]
     Active Substance: CARBIDOPA\LEVODOPA
     Dosage: MD= 6ML CD= 2ML/HR DURING 16HRS ED= 1.2ML
     Route: 050
     Dates: start: 20190503
  8. STALEVO 100 [Concomitant]
     Indication: PARKINSON^S DISEASE
     Dosage: FORM STRENGTH: 100MG/25MG/200MG
     Route: 048
  9. STALEVO [Concomitant]
     Active Substance: CARBIDOPA\ENTACAPONE\LEVODOPA
     Indication: PRODUCT USED FOR UNKNOWN INDICATION
     Dosage: WHEN GOING OUT
     Route: 065
  10. STALEVO 150 [Concomitant]
     Indication: PARKINSON^S DISEASE
     Dosage: FORM STRENGTH: 150MG/37.5MG/200MG
     Route: 048
  11. STALEVO 150 [Concomitant]
     Dosage: FORM STRENGTH: 150MG/37.5MG/200MG?RESCUE MEDICATION, 2 TIMES A DAY
     Route: 048

REACTIONS (6)
  - Abdominal discomfort [Recovered/Resolved]
  - Respiratory tract procedural complication [Recovered/Resolved]
  - Therapeutic product effect delayed [Unknown]
  - Oxygen saturation decreased [Recovered/Resolved]
  - Therapeutic product effect incomplete [Unknown]
  - Pneumonia aspiration [Not Recovered/Not Resolved]

NARRATIVE: CASE EVENT DATE: 201904
